FAERS Safety Report 9900859 (Version 1)
Quarter: 2014Q1

REPORT INFORMATION
  Report Type: Spontaneous
  Country: US (occurrence: US)
  Receive Date: 20140217
  Receipt Date: 20140217
  Transmission Date: 20141002
  Serious: Yes (Death, Other)
  Sender: FDA-Public Use
  Company Number: US-MALLINCKRODT-T201400839

PATIENT
  Age: 24 Year
  Sex: Male

DRUGS (2)
  1. METHYLIN [Suspect]
     Indication: PRODUCT USED FOR UNKNOWN INDICATION
     Dosage: 10 TABLETS
     Route: 048
  2. BUPROPION HCL ER [Suspect]
     Dosage: 90 TABS OF 300 MG
     Route: 048

REACTIONS (11)
  - Toxicity to various agents [Fatal]
  - Completed suicide [Fatal]
  - Cardiac arrest [Fatal]
  - Grand mal convulsion [Unknown]
  - Confusional state [Unknown]
  - Vomiting [Unknown]
  - Feeling abnormal [Unknown]
  - Tremor [Unknown]
  - Mydriasis [Unknown]
  - Heart rate increased [Recovering/Resolving]
  - Agitation [Unknown]
